FAERS Safety Report 9934376 (Version 4)
Quarter: 2017Q2

REPORT INFORMATION
  Report Type: Spontaneous
  Country: CH (occurrence: CH)
  Receive Date: 20140228
  Receipt Date: 20170606
  Transmission Date: 20170830
  Serious: Yes (Life-Threatening, Hospitalization)
  Sender: FDA-Public Use
  Company Number: CH-INCYTE CORPORATION-2014IN000485

PATIENT

DRUGS (6)
  1. JAKAVI [Suspect]
     Active Substance: RUXOLITINIB
     Dosage: 20 MG, UNK
     Route: 048
     Dates: start: 20170203
  2. JAKAVI [Suspect]
     Active Substance: RUXOLITINIB
     Dosage: 20 MG, UNK
     Route: 048
     Dates: start: 20140722, end: 20170203
  3. MAGNESIUM [Concomitant]
     Active Substance: MAGNESIUM
     Indication: MUSCLE SPASMS
     Dosage: 10 MMOL, NOT REGULAR
     Route: 048
     Dates: start: 20130319, end: 20140206
  4. ASPIRIN. [Concomitant]
     Active Substance: ASPIRIN
     Indication: MYELOPROLIFERATIVE NEOPLASM
     Dosage: 100 MG, UNK
     Route: 048
     Dates: start: 20110923, end: 20140206
  5. JAKAVI [Suspect]
     Active Substance: RUXOLITINIB
     Indication: MYELOFIBROSIS
     Dosage: 20 MG, BID
     Route: 048
     Dates: start: 20140128, end: 20140206
  6. JAKAVI [Suspect]
     Active Substance: RUXOLITINIB
     Dosage: 10 MG, UNK
     Route: 048
     Dates: start: 20140415, end: 20140722

REACTIONS (10)
  - Haemorrhage [Recovering/Resolving]
  - Hypovolaemia [Unknown]
  - Traumatic haematoma [Recovering/Resolving]
  - Hyperkalaemia [Unknown]
  - Renal failure [Unknown]
  - Platelet function test abnormal [Unknown]
  - Headache [Not Recovered/Not Resolved]
  - International normalised ratio increased [Unknown]
  - Post procedural haemorrhage [Recovering/Resolving]
  - Cardiovascular disorder [Unknown]

NARRATIVE: CASE EVENT DATE: 20140429
